FAERS Safety Report 9906181 (Version 1)
Quarter: 2014Q1

REPORT INFORMATION
  Report Type: Spontaneous
  Country: US (occurrence: None)
  Receive Date: 20140212
  Receipt Date: 20140212
  Transmission Date: 20141002
  Serious: Yes (Disabling)
  Sender: FDA-Public Use
  Company Number: None

PATIENT
  Age: 58 Year
  Sex: Female
  Weight: 99.79 kg

DRUGS (1)
  1. REUMOFAN PLUS [Suspect]
     Indication: ARTHRALGIA
     Dosage: 1 PILL TWICE DAILY
     Route: 048
     Dates: start: 20130601, end: 20131207

REACTIONS (11)
  - Arthralgia [None]
  - Condition aggravated [None]
  - Product formulation issue [None]
  - Product quality issue [None]
  - Weight increased [None]
  - Fluid retention [None]
  - Arthralgia [None]
  - Hypoaesthesia [None]
  - Rash [None]
  - Dry skin [None]
  - Skin disorder [None]
